FAERS Safety Report 17521784 (Version 1)
Quarter: 2020Q1

REPORT INFORMATION
  Report Type: Spontaneous
  Country: PT (occurrence: PT)
  Receive Date: 20200310
  Receipt Date: 20200310
  Transmission Date: 20200409
  Serious: Yes (Other)
  Sender: FDA-Public Use
  Company Number: PT-SA-2020SA060308

PATIENT
  Age: 55 Year
  Sex: Male

DRUGS (18)
  1. ANTI-THYMOCYTE GLOBULIN (RABBIT) NOS [Suspect]
     Active Substance: LAPINE T-LYMPHOCYTE IMMUNE GLOBULIN
     Indication: PROPHYLAXIS AGAINST TRANSPLANT REJECTION
     Dosage: 200MG / DAY 7 DAYS - 1550MG TOTAL DOSE 7 DAYS
     Route: 042
     Dates: start: 20090825, end: 20090901
  2. COTRIMOXAZOLE [Concomitant]
     Active Substance: SULFAMETHOXAZOLE\TRIMETHOPRIM
     Route: 048
  3. ENOXAPARIN SODIUM. [Concomitant]
     Active Substance: ENOXAPARIN SODIUM
     Route: 058
  4. RITUXIMAB. [Concomitant]
     Active Substance: RITUXIMAB
     Route: 042
  5. METHYLPREDNISOLONE. [Concomitant]
     Active Substance: METHYLPREDNISOLONE
     Dosage: PULSE
  6. DILTIAZEM. [Concomitant]
     Active Substance: DILTIAZEM
  7. CATAPRESAN [CLONIDINE HYDROCHLORIDE] [Concomitant]
     Active Substance: CLONIDINE HYDROCHLORIDE
     Route: 048
  8. FUROSEMIDE. [Concomitant]
     Active Substance: FUROSEMIDE
     Route: 048
  9. MYCOSTATIN [Concomitant]
     Active Substance: NYSTATIN
     Route: 048
  10. VARFINE [Concomitant]
     Active Substance: WARFARIN SODIUM
     Route: 048
  11. FLUOXETINE [Concomitant]
     Active Substance: FLUOXETINE HYDROCHLORIDE
     Route: 048
  12. NEORECORMON [Concomitant]
     Active Substance: ERYTHROPOIETIN
     Route: 058
  13. PANTOPRAZOLE [Concomitant]
     Active Substance: PANTOPRAZOLE
  14. ADALAT CC [Concomitant]
     Active Substance: NIFEDIPINE
     Dosage: 8/8H
     Route: 048
  15. MYCOPHENOLATE MOFETIL. [Concomitant]
     Active Substance: MYCOPHENOLATE MOFETIL
     Dosage: 12/12H
  16. PREDNISOLONE. [Concomitant]
     Active Substance: PREDNISOLONE
  17. TACROLIMUS. [Concomitant]
     Active Substance: TACROLIMUS
     Dosage: 12/12H
  18. VALGANCICLOVIR. [Concomitant]
     Active Substance: VALGANCICLOVIR

REACTIONS (1)
  - Haemolytic anaemia [Unknown]

NARRATIVE: CASE EVENT DATE: 20091002
